FAERS Safety Report 5848354-3 (Version None)
Quarter: 2008Q3

REPORT INFORMATION
  Report Type: 
  Country: None (occurrence: None)
  Receive Date: 20080814
  Receipt Date: 20080729
  Transmission Date: 20090109
  Serious: Yes (Disabling)
  Sender: FDA-Public Use
  Company Number: 8035578

PATIENT
  Age: 7 Year
  Sex: Male
  Weight: 24.15 kg

DRUGS (2)
  1. EQUASYM [Suspect]
     Indication: ATTENTION DEFICIT/HYPERACTIVITY DISORDER
     Dosage: 30 MG 1/D PO
     Route: 048
     Dates: start: 20080502
  2. STRATTERA [Suspect]
     Indication: ATTENTION DEFICIT/HYPERACTIVITY DISORDER
     Dosage: 25 MG 1/D PO
     Route: 048
     Dates: start: 20080701, end: 20080708

REACTIONS (7)
  - ABNORMAL BEHAVIOUR [None]
  - CRYING [None]
  - FORMICATION [None]
  - HALLUCINATION [None]
  - NIGHTMARE [None]
  - SCREAMING [None]
  - THINKING ABNORMAL [None]
